FAERS Safety Report 7828631-7 (Version None)
Quarter: 2011Q4

REPORT INFORMATION
  Report Type: 
  Country: None (occurrence: None)
  Receive Date: 20111020
  Receipt Date: 20111013
  Transmission Date: 20120403
  Serious: Yes (Other)
  Sender: FDA-Public Use
  Company Number: PHHY2011JP85688

PATIENT
  Age: 68 Year
  Sex: Male

DRUGS (4)
  1. LEUCOVORIN CALCIUM [Concomitant]
     Indication: COLORECTAL CANCER
     Dosage: UNK
     Dates: start: 20090801
  2. OXALIPLATIN [Suspect]
     Indication: COLORECTAL CANCER
     Dosage: UNK
     Dates: start: 20090201
  3. FLUOROURACIL [Concomitant]
     Indication: COLORECTAL CANCER
     Dosage: UNK
     Dates: start: 20090801
  4. BEVACIZUMAB [Concomitant]
     Indication: COLORECTAL CANCER
     Dosage: UNK
     Dates: start: 20090801

REACTIONS (2)
  - PERFORMANCE STATUS DECREASED [None]
  - SPLENOMEGALY [None]
